FAERS Safety Report 9137745 (Version 1)
Quarter: 2013Q1

REPORT INFORMATION
  Report Type: Spontaneous
  Country: US (occurrence: US)
  Receive Date: 20130304
  Receipt Date: 20130304
  Transmission Date: 20140127
  Serious: No
  Sender: FDA-Public Use
  Company Number: US-ENDO PHARMACEUTICALS INC.-PERC20110004

PATIENT
  Age: 45 Year
  Sex: Male
  Weight: 122.58 kg

DRUGS (4)
  1. PERCOCET [Suspect]
     Indication: BACK PAIN
     Dosage: UNK
     Route: 048
     Dates: start: 20091217
  2. HUMIRA [Suspect]
     Indication: PSORIASIS
     Dosage: 40 MG/0.8 ML
     Dates: start: 2008, end: 2010
  3. CLONAZEPAM [Concomitant]
     Indication: ANXIETY
     Dosage: UNK
  4. FLUOXETINE [Concomitant]
     Indication: DEPRESSION
     Dosage: UNK

REACTIONS (2)
  - Psoriasis [Unknown]
  - Vomiting [Recovered/Resolved]
